FAERS Safety Report 4383751-7 (Version None)
Quarter: 2004Q2

REPORT INFORMATION
  Report Type: 
  Country: None (occurrence: None)
  Receive Date: 20040608
  Receipt Date: 20040608
  Transmission Date: 20050107
  Serious: Yes (Other)
  Sender: FDA-Public Use
  Company Number: 200312061BCC

PATIENT
  Age: 57 Year
  Sex: Female
  Weight: 68.0396 kg

DRUGS (1)
  1. ALEVE [Suspect]
     Dosage: 440 MG, ONCE, ORAL
     Route: 048
     Dates: start: 20030617

REACTIONS (4)
  - HYPERSENSITIVITY [None]
  - PRURITUS [None]
  - SWOLLEN TONGUE [None]
  - URTICARIA GENERALISED [None]
